FAERS Safety Report 9973991 (Version 1)
Quarter: 2014Q1

REPORT INFORMATION
  Report Type: Report from Study
  Country: US (occurrence: US)
  Receive Date: 20140306
  Receipt Date: 20140306
  Transmission Date: 20141002
  Serious: No
  Sender: FDA-Public Use
  Company Number: US-ABBVIE-13P-163-1155194-00

PATIENT
  Age: 59 Year
  Sex: Male
  Weight: 86.26 kg

DRUGS (6)
  1. HUMIRA [Suspect]
     Indication: COLITIS ULCERATIVE
     Route: 058
     Dates: start: 201308
  2. VITAMINS [Concomitant]
     Indication: PRODUCT USED FOR UNKNOWN INDICATION
  3. ASACOL [Concomitant]
     Indication: COLITIS ULCERATIVE
  4. METOPROLOL [Concomitant]
     Indication: BLOOD PRESSURE
  5. CARDIZEM [Concomitant]
     Indication: BLOOD PRESSURE
  6. LOMOTIL [Concomitant]
     Indication: COLITIS ULCERATIVE

REACTIONS (1)
  - Incorrect dose administered [Unknown]
